FAERS Safety Report 10243516 (Version 1)
Quarter: 2014Q2

REPORT INFORMATION
  Report Type: Spontaneous
  Country: HN (occurrence: HN)
  Receive Date: 20140618
  Receipt Date: 20140618
  Transmission Date: 20141212
  Serious: Yes (Other)
  Sender: FDA-Public Use
  Company Number: HN-009507513-1406HND008628

PATIENT
  Sex: Female

DRUGS (1)
  1. IMPLANON [Suspect]
     Indication: CONTRACEPTION
     Dosage: DAILY 60-70 MICROGRAM, TRIENIAL
     Route: 059

REACTIONS (2)
  - Skin necrosis [Unknown]
  - Implant site erythema [Unknown]
